FAERS Safety Report 13464913 (Version 1)
Quarter: 2017Q2

REPORT INFORMATION
  Report Type: Spontaneous
  Country: US (occurrence: US)
  Receive Date: 20170420
  Receipt Date: 20170420
  Transmission Date: 20170830
  Serious: Yes (Hospitalization)
  Sender: FDA-Public Use
  Company Number: US-CELGENEUS-USA-20170405112

PATIENT
  Sex: Female

DRUGS (10)
  1. THALOMID [Suspect]
     Active Substance: THALIDOMIDE
     Dosage: 200 MILLIGRAM
     Route: 048
     Dates: start: 200601
  2. THALOMID [Suspect]
     Active Substance: THALIDOMIDE
     Dosage: 200MG-800MG
     Route: 048
     Dates: start: 201112
  3. THALOMID [Suspect]
     Active Substance: THALIDOMIDE
     Dosage: 200 MILLIGRAM
     Route: 048
     Dates: start: 200509
  4. THALOMID [Suspect]
     Active Substance: THALIDOMIDE
     Dosage: 100MG-150MG
     Route: 048
     Dates: start: 20160718
  5. THALOMID [Suspect]
     Active Substance: THALIDOMIDE
     Indication: SARCOIDOSIS
     Dosage: 50 MILLIGRAM
     Route: 048
     Dates: start: 200506
  6. THALOMID [Suspect]
     Active Substance: THALIDOMIDE
     Dosage: 50MG-400MG
     Route: 048
     Dates: start: 201210
  7. THALOMID [Suspect]
     Active Substance: THALIDOMIDE
     Dosage: 50MG-150MG
     Route: 048
     Dates: start: 201611
  8. THALOMID [Suspect]
     Active Substance: THALIDOMIDE
     Dosage: 50MG-200MG
     Route: 048
     Dates: start: 201506
  9. THALOMID [Suspect]
     Active Substance: THALIDOMIDE
     Dosage: 200 MILLIGRAM
     Route: 048
     Dates: start: 200605
  10. THALOMID [Suspect]
     Active Substance: THALIDOMIDE
     Dosage: 200 MILLIGRAM
     Route: 048
     Dates: start: 200703

REACTIONS (2)
  - Hypersomnia [Unknown]
  - Dysphagia [Unknown]

NARRATIVE: CASE EVENT DATE: 2016
